FAERS Safety Report 9239131 (Version 1)
Quarter: 2013Q2

REPORT INFORMATION
  Report Type: Spontaneous
  Country: AT (occurrence: AT)
  Receive Date: 20130418
  Receipt Date: 20130418
  Transmission Date: 20140414
  Serious: Yes (Other)
  Sender: FDA-Public Use
  Company Number: AT-PFIZER INC-2013120705

PATIENT
  Age: 41 Year
  Sex: Male

DRUGS (2)
  1. PIPERACILLIN/TAZOBACTAM [Suspect]
     Indication: SEPSIS
     Dosage: 4/0.5 G TID
  2. CLINDAMYCIN HCL [Suspect]
     Indication: SEPSIS
     Dosage: 900 MG, 3X/DAY

REACTIONS (2)
  - Renal failure acute [Recovered/Resolved]
  - Hepatic failure [Recovered/Resolved]
